FAERS Safety Report 25255557 (Version 1)
Quarter: 2025Q2

REPORT INFORMATION
  Report Type: Spontaneous
  Country: GB (occurrence: GB)
  Receive Date: 20250430
  Receipt Date: 20250430
  Transmission Date: 20250717
  Serious: Yes (Life-Threatening, Disabling, Other)
  Sender: TEVA
  Company Number: None

PATIENT
  Age: 60 Year
  Sex: Female
  Weight: 47 kg

DRUGS (9)
  1. TRAMADOL [Suspect]
     Active Substance: TRAMADOL
     Indication: Adverse drug reaction
     Dosage: 50MG EVERY 6 HOURS, 200 MG DAILY
     Route: 065
     Dates: start: 20250425
  2. PAROXETINE [Concomitant]
     Active Substance: PAROXETINE
     Indication: Product used for unknown indication
  3. DIAZEPAM [Concomitant]
     Active Substance: DIAZEPAM
     Indication: Product used for unknown indication
  4. BACLOFEN [Suspect]
     Active Substance: BACLOFEN
     Indication: Product used for unknown indication
     Route: 065
  5. ZOLEDRONIC ACID [Concomitant]
     Active Substance: ZOLEDRONIC ACID
     Indication: Product used for unknown indication
  6. GABAPENTIN [Suspect]
     Active Substance: GABAPENTIN
     Indication: Product used for unknown indication
     Route: 065
  7. Prednisalone [Concomitant]
     Indication: Adverse drug reaction
     Dates: start: 20240225, end: 20240308
  8. Lanzaparazole [Concomitant]
     Indication: Incarcerated hiatus hernia
     Dates: start: 20180809
  9. AMITRIPTYLINE [Suspect]
     Active Substance: AMITRIPTYLINE
     Indication: Product used for unknown indication
     Route: 065

REACTIONS (10)
  - Psychotic disorder [Not Recovered/Not Resolved]
  - Vomiting [Unknown]
  - Cauda equina syndrome [Unknown]
  - Aggression [Unknown]
  - Anal incontinence [Unknown]
  - Emotional distress [Unknown]
  - Dizziness [Unknown]
  - Paranoia [Unknown]
  - Mood swings [Unknown]
  - Nausea [Unknown]
